FAERS Safety Report 6271318-5 (Version None)
Quarter: 2009Q3

REPORT INFORMATION
  Report Type: 
  Country: None (occurrence: None)
  Receive Date: 20090717
  Receipt Date: 20090706
  Transmission Date: 20100115
  Serious: Yes (Death, Life-Threatening, Hospitalization)
  Sender: FDA-Public Use
  Company Number: GB-JNJFOC-20070905633

PATIENT
  Sex: Female
  Weight: 54 kg

DRUGS (19)
  1. INFLIXIMAB [Suspect]
  2. INFLIXIMAB [Suspect]
     Indication: RHEUMATOID ARTHRITIS
  3. METHOTREXATE [Concomitant]
     Dosage: ^1/7^
  4. PREDNISOLONE [Concomitant]
  5. ADALAT [Concomitant]
  6. AQUEOUS CREAM [Concomitant]
  7. ARTIFICIAL TEARS [Concomitant]
  8. ACETAMINOPHEN WITH PROPOXYPHENE HCL TAB [Concomitant]
  9. DIDRONEL [Concomitant]
  10. FOLIC ACID [Concomitant]
     Dosage: ^3/7^
  11. INDOCIN [Concomitant]
  12. ISPAGHULA HUSK [Concomitant]
  13. QUININE SULPHATE [Concomitant]
  14. RABEPRAZOLE SODIUM [Concomitant]
  15. SALIVIX [Concomitant]
  16. TEMAZEPAM [Concomitant]
  17. TENORETIC 100 [Concomitant]
  18. FUROSEMIDE [Concomitant]
  19. DOXAZOSIN MESYLATE [Concomitant]

REACTIONS (3)
  - BRONCHOPNEUMONIA [None]
  - FALL [None]
  - FEMORAL NECK FRACTURE [None]
